FAERS Safety Report 11321323 (Version 2)
Quarter: 2015Q3

REPORT INFORMATION
  Report Type: Spontaneous
  Country: JP (occurrence: JP)
  Receive Date: 20150729
  Receipt Date: 20150825
  Transmission Date: 20151125
  Serious: Yes (Other)
  Sender: FDA-Public Use
  Company Number: JP-GLAXOSMITHKLINE-JP2015JPN074342

PATIENT
  Age: 92 Year
  Sex: Female

DRUGS (2)
  1. NORVASC [Concomitant]
     Active Substance: AMLODIPINE BESYLATE
     Dosage: UNK
  2. VALTREX [Suspect]
     Active Substance: VALACYCLOVIR HYDROCHLORIDE
     Indication: HERPES ZOSTER
     Dosage: 1000 MG, TID
     Route: 048

REACTIONS (9)
  - Seizure [Recovered/Resolved]
  - Dyskinesia [Recovered/Resolved]
  - Renal disorder [Recovered/Resolved]
  - Altered state of consciousness [Recovering/Resolving]
  - Disorientation [Unknown]
  - Loss of consciousness [Unknown]
  - Dysarthria [Recovered/Resolved]
  - Decreased appetite [Recovered/Resolved]
  - Somnolence [Unknown]
